FAERS Safety Report 4295876-5 (Version None)
Quarter: 2004Q1

REPORT INFORMATION
  Report Type: 
  Country: None (occurrence: None)
  Receive Date: 20040216
  Receipt Date: 20031124
  Transmission Date: 20041129
  Serious: No
  Sender: FDA-Public Use
  Company Number: US-GLAXOSMITHKLINE-A0441139A

PATIENT
  Age: 66 Year
  Sex: Female

DRUGS (8)
  1. LAMICTAL [Suspect]
     Indication: BIPOLAR DISORDER
     Dosage: 25MG PER DAY
     Route: 048
     Dates: start: 20030826, end: 20030901
  2. LIPITOR [Concomitant]
  3. SYNTHROID [Concomitant]
  4. CYTOMEL [Concomitant]
  5. ESTROGEN [Concomitant]
  6. MEDROXYPROGESTERONE [Concomitant]
  7. AMBIEN [Concomitant]
  8. VALIUM [Concomitant]

REACTIONS (5)
  - LEUKOPLAKIA [None]
  - PRURITUS [None]
  - RASH [None]
  - RASH PAPULAR [None]
  - URTICARIA [None]
